FAERS Safety Report 7493642-0 (Version None)
Quarter: 2011Q2

REPORT INFORMATION
  Report Type: 
  Country: None (occurrence: None)
  Receive Date: 20110520
  Receipt Date: 20110513
  Transmission Date: 20111010
  Serious: Yes (Death, Other)
  Sender: FDA-Public Use
  Company Number: JP-JNJFOC-20110410212

PATIENT
  Sex: Female

DRUGS (20)
  1. UNASYN [Concomitant]
     Indication: PYREXIA
     Route: 065
     Dates: start: 20101110, end: 20101122
  2. LOXONIN [Concomitant]
     Route: 065
     Dates: start: 20101111, end: 20101124
  3. SOLU-MEDROL [Concomitant]
     Route: 065
     Dates: start: 20101118, end: 20101120
  4. PREDNISOLONE [Concomitant]
     Route: 065
     Dates: start: 20101119
  5. BONALON [Concomitant]
     Indication: OSTEOPOROSIS PROPHYLAXIS
     Route: 048
     Dates: start: 20101119
  6. ITRACONAZOLE [Suspect]
     Indication: OESOPHAGEAL CANDIDIASIS
     Route: 048
     Dates: start: 20101119, end: 20101126
  7. CEFOTIAM HYDROCHLORIDE [Concomitant]
     Dosage: FOUR 5 MG
     Route: 065
     Dates: start: 20101106
  8. ALBUMIN (HUMAN) [Concomitant]
     Indication: OEDEMA
     Route: 065
     Dates: start: 20101117, end: 20101121
  9. FUROSEMIDE [Concomitant]
     Indication: HYPOALBUMINAEMIA
     Route: 065
     Dates: start: 20101117, end: 20101121
  10. LANSOPRAZOLE [Concomitant]
     Route: 065
     Dates: start: 20101118
  11. CEFTERAM PIVOXIL [Concomitant]
     Dosage: THREE 100 MG, TOOK ONLY ONCE
     Route: 048
     Dates: start: 20101105
  12. ALBUMIN (HUMAN) [Concomitant]
     Indication: HYPOALBUMINAEMIA
     Route: 065
     Dates: start: 20101117, end: 20101121
  13. FUROSEMIDE [Concomitant]
     Indication: OEDEMA
     Route: 065
     Dates: start: 20101117, end: 20101121
  14. CLINDAMYCIN HCL [Concomitant]
     Indication: PYREXIA
     Route: 048
     Dates: start: 20101111, end: 20101117
  15. VANCOMYCIN HYDROCHLORIDE [Concomitant]
     Indication: DIARRHOEA
     Route: 048
     Dates: start: 20101122
  16. PREDNISOLONE [Concomitant]
     Dosage: FOUR 5 MG, TOOK ONLY ONCE
     Route: 048
     Dates: start: 20101105
  17. ITRACONAZOLE [Suspect]
     Indication: OESOPHAGEAL CANDIDIASIS
     Route: 048
     Dates: start: 20101119, end: 20101126
  18. FLOMAX [Concomitant]
     Indication: BIOPSY MUSCLE
     Route: 048
     Dates: start: 20101122, end: 20101124
  19. MINOCYCLINE HCL [Concomitant]
     Indication: PYREXIA
     Route: 048
     Dates: start: 20101117, end: 20101122
  20. ENTOMOL [Concomitant]
     Indication: DIARRHOEA
     Route: 048
     Dates: start: 20101120

REACTIONS (4)
  - CARDIO-RESPIRATORY ARREST [None]
  - DIZZINESS [None]
  - PULMONARY EMBOLISM [None]
  - PULMONARY INFARCTION [None]
